FAERS Safety Report 23188136 (Version 2)
Quarter: 2023Q4

REPORT INFORMATION
  Report Type: Spontaneous
  Country: MX (occurrence: MX)
  Receive Date: 20231115
  Receipt Date: 20231130
  Transmission Date: 20240110
  Serious: Yes (Death, Other)
  Sender: FDA-Public Use
  Company Number: MX-002147023-NVSC2023MX242432

PATIENT
  Age: 91 Year
  Sex: Female

DRUGS (1)
  1. EXELON [Suspect]
     Active Substance: RIVASTIGMINE TARTRATE
     Indication: Senile dementia
     Dosage: 1 DF, (PARCHE 5, EXTENDED RELEASE)
     Route: 062
     Dates: start: 20221201, end: 202308

REACTIONS (4)
  - Feeding disorder [Fatal]
  - Skin abrasion [Unknown]
  - Application site pruritus [Unknown]
  - Application site vesicles [Recovered/Resolved]
